FAERS Safety Report 20626492 (Version 2)
Quarter: 2022Q2

REPORT INFORMATION
  Report Type: Spontaneous
  Country: US (occurrence: US)
  Receive Date: 20220323
  Receipt Date: 20220425
  Transmission Date: 20220720
  Serious: Yes (Other)
  Sender: FDA-Public Use
  Company Number: US-BoehringerIngelheim-2022-BI-159765

PATIENT
  Age: 61 Year
  Sex: Female

DRUGS (3)
  1. SPIRIVA HANDIHALER [Suspect]
     Active Substance: TIOTROPIUM BROMIDE MONOHYDRATE
     Indication: Chronic obstructive pulmonary disease
     Dosage: EXPIRY DATE 04-MAR-2023 AND 31-JAN-2023
     Dates: start: 2010
  2. METOPROLOL [Concomitant]
     Active Substance: METOPROLOL
     Indication: Product used for unknown indication
  3. ADVAIR HFA [Concomitant]
     Active Substance: FLUTICASONE PROPIONATE\SALMETEROL XINAFOATE
     Indication: Product used for unknown indication

REACTIONS (3)
  - Pulmonary hypertension [Not Recovered/Not Resolved]
  - Extra dose administered [Unknown]
  - Product physical issue [Unknown]

NARRATIVE: CASE EVENT DATE: 20220316
